FAERS Safety Report 5668344-3 (Version None)
Quarter: 2008Q1

REPORT INFORMATION
  Report Type: 
  Country: None (occurrence: None)
  Receive Date: 20080315
  Receipt Date: 20080220
  Transmission Date: 20080703
  Serious: No
  Sender: FDA-Public Use
  Company Number: US-ABBOTT-08P-163-0439433-00

PATIENT
  Sex: Female
  Weight: 108.96 kg

DRUGS (2)
  1. HUMIRA [Suspect]
     Indication: PSORIASIS
     Route: 058
     Dates: start: 20050101, end: 20070923
  2. ACETYLSALICYLIC ACID [Concomitant]
     Indication: BACK PAIN

REACTIONS (3)
  - PAIN [None]
  - PSORIASIS [None]
  - SKIN PLAQUE [None]
